FAERS Safety Report 14083346 (Version 2)
Quarter: 2017Q4

REPORT INFORMATION
  Report Type: Spontaneous
  Country: DE (occurrence: DE)
  Receive Date: 20171012
  Receipt Date: 20171024
  Transmission Date: 20180321
  Serious: Yes (Other)
  Sender: FDA-Public Use
  Company Number: DE-BRISTOL-MYERS SQUIBB COMPANY-BMS-2017-056553

PATIENT
  Sex: Female

DRUGS (1)
  1. ELIQUIS [Suspect]
     Active Substance: APIXABAN
     Indication: DEMENTIA
     Dosage: 2.5 MG, BID
     Route: 048

REACTIONS (3)
  - Fall [Unknown]
  - Multiple fractures [Unknown]
  - Product use in unapproved indication [Unknown]
